FAERS Safety Report 12603747 (Version 1)
Quarter: 2016Q3

REPORT INFORMATION
  Report Type: Spontaneous
  Country: US (occurrence: US)
  Receive Date: 20160728
  Receipt Date: 20160728
  Transmission Date: 20161109
  Serious: No
  Sender: FDA-Public Use
  Company Number: US-MYLANLABS-2015M1032131

PATIENT

DRUGS (1)
  1. LEVOTHYROXINE. [Suspect]
     Active Substance: LEVOTHYROXINE
     Indication: HYPOTHYROIDISM
     Dosage: 112 ?G, QD
     Dates: start: 201012, end: 2013

REACTIONS (1)
  - Thyroid function test abnormal [Recovered/Resolved]

NARRATIVE: CASE EVENT DATE: 201012
